FAERS Safety Report 4302793-0 (Version None)
Quarter: 2004Q1

REPORT INFORMATION
  Report Type: 
  Country: None (occurrence: None)
  Receive Date: 20040223
  Receipt Date: 20040223
  Transmission Date: 20041129
  Serious: Yes (Other)
  Sender: FDA-Public Use
  Company Number: None

PATIENT
  Sex: Male
  Weight: 45.8133 kg

DRUGS (1)
  1. STRATTERA [Suspect]
     Indication: ATTENTION DEFICIT/HYPERACTIVITY DISORDER
     Dosage: 1 CAPSUL DAILY ORAL
     Route: 048
     Dates: start: 20031210, end: 20040220

REACTIONS (4)
  - ANGER [None]
  - INSOMNIA [None]
  - MOOD ALTERED [None]
  - SLEEP TALKING [None]
